FAERS Safety Report 7953729-2 (Version None)
Quarter: 2011Q4

REPORT INFORMATION
  Report Type: 
  Country: None (occurrence: None)
  Receive Date: 20111129
  Receipt Date: 20111122
  Transmission Date: 20120403
  Serious: Yes (Hospitalization, Other)
  Sender: FDA-Public Use
  Company Number: 2009SP023301

PATIENT
  Age: 31 Year
  Sex: Female
  Weight: 113.3993 kg

DRUGS (2)
  1. NUVARING [Suspect]
     Indication: CONTRACEPTION
     Dates: start: 20030201, end: 20070801
  2. ACETAMINOPHEN [Concomitant]

REACTIONS (17)
  - VISUAL ACUITY REDUCED [None]
  - DEEP VEIN THROMBOSIS [None]
  - STRABISMUS [None]
  - PHOTOPSIA [None]
  - UVEITIS [None]
  - METABOLIC SYNDROME [None]
  - MIGRAINE [None]
  - HEADACHE [None]
  - RHEUMATOID ARTHRITIS [None]
  - CATARACT [None]
  - RENAL CYST [None]
  - PULMONARY EMBOLISM [None]
  - SLEEP APNOEA SYNDROME [None]
  - REFRACTIVE AMBLYOPIA [None]
  - OSTEOARTHRITIS [None]
  - OESOPHAGEAL ACHALASIA [None]
  - INSOMNIA [None]
